FAERS Safety Report 10653694 (Version 1)
Quarter: 2014Q4

REPORT INFORMATION
  Report Type: Spontaneous
  Country: US (occurrence: US)
  Receive Date: 20141216
  Receipt Date: 20141216
  Transmission Date: 20150529
  Serious: Yes (Other)
  Sender: FDA-Public Use
  Company Number: US-AMGEN-USASP2014096902

PATIENT
  Age: 46 Year
  Sex: Female

DRUGS (1)
  1. ENBREL [Suspect]
     Active Substance: ETANERCEPT
     Indication: RHEUMATOID ARTHRITIS
     Dosage: 50 MG, QWK
     Route: 065
     Dates: start: 20130115

REACTIONS (3)
  - Eye pruritus [Not Recovered/Not Resolved]
  - Sinus congestion [Not Recovered/Not Resolved]
  - Meniere^s disease [Not Recovered/Not Resolved]

NARRATIVE: CASE EVENT DATE: 20141206
